FAERS Safety Report 14441428 (Version 1)
Quarter: 2018Q1

REPORT INFORMATION
  Report Type: Spontaneous
  Country: US (occurrence: US)
  Receive Date: 20180125
  Receipt Date: 20180125
  Transmission Date: 20180509
  Serious: Yes (Other)
  Sender: FDA-Public Use
  Company Number: US-SAOL THERAPEUTICS-2017SAO03522

PATIENT
  Age: 66 Year
  Sex: Female
  Weight: 90.7 kg

DRUGS (24)
  1. BUPIVACAINE. [Suspect]
     Active Substance: BUPIVACAINE
     Dosage: 18.013 MG, \DAY - MAX
     Route: 037
     Dates: start: 20170830
  2. PRILOSEC [Concomitant]
     Active Substance: OMEPRAZOLE MAGNESIUM
     Dosage: 20 MG, 1X/DAY
     Route: 048
     Dates: start: 20130425
  3. XANAX [Concomitant]
     Active Substance: ALPRAZOLAM
     Dosage: 0.5 MG, UNK
     Route: 048
     Dates: start: 20130425
  4. ZOFRAN [Concomitant]
     Active Substance: ONDANSETRON HYDROCHLORIDE
     Dosage: 8 MG, 1X/DAY
     Route: 048
     Dates: start: 20140529
  5. MOVANTIK [Concomitant]
     Active Substance: NALOXEGOL OXALATE
     Dosage: 25 MG, 1X/DAY
     Route: 048
     Dates: start: 20171219
  6. BUPIVACAINE. [Suspect]
     Active Substance: BUPIVACAINE
     Dosage: 14.64 MG, \DAY
     Route: 037
     Dates: start: 20151124
  7. OPANA [Concomitant]
     Active Substance: OXYMORPHONE HYDROCHLORIDE
     Dosage: 20 MG, 1X/DAY
     Route: 048
     Dates: start: 20140923
  8. BUPIVACAINE. [Suspect]
     Active Substance: BUPIVACAINE
     Dosage: 14.654 MG, \DAY
     Route: 037
     Dates: start: 20170830
  9. VITAMIN D [Concomitant]
     Active Substance: CHOLECALCIFEROL
     Dosage: UNK
     Route: 048
     Dates: start: 20130425
  10. BACLOFEN. [Suspect]
     Active Substance: BACLOFEN
     Indication: POST LAMINECTOMY SYNDROME
     Dosage: 87.86 ?G, \DAY
     Route: 037
     Dates: start: 20151124
  11. BACLOFEN. [Suspect]
     Active Substance: BACLOFEN
     Indication: SPINAL PAIN
     Dosage: 87.92 ?G, \DAY
     Route: 037
     Dates: start: 20170830
  12. CALTRATE 600+D [Concomitant]
     Route: 048
  13. CENTRUM [Concomitant]
     Active Substance: VITAMINS
     Dosage: UNK
     Route: 048
     Dates: start: 20130425
  14. LIDOCAINE. [Concomitant]
     Active Substance: LIDOCAINE
     Dosage: UNK
     Route: 061
     Dates: start: 20140717
  15. TRICOR [Concomitant]
     Active Substance: FENOFIBRATE
     Dosage: 145 UNK, UNK
     Route: 048
     Dates: start: 20130425
  16. OXYCONTIN [Concomitant]
     Active Substance: OXYCODONE HYDROCHLORIDE
     Dosage: 60 MG, 1X/DAY
  17. BACLOFEN. [Suspect]
     Active Substance: BACLOFEN
     Dosage: 108.08 ?G, \DAY - MAX
     Route: 037
     Dates: start: 20170830
  18. MORPHINE [Suspect]
     Active Substance: MORPHINE
     Dosage: 20.5 MG, \DAY
     Route: 037
     Dates: start: 20151124
  19. MORPHINE [Suspect]
     Active Substance: MORPHINE
     Dosage: 25.218 MG, \DAY - MAX
     Route: 037
     Dates: start: 20170830
  20. HYDROMORPHONE [Concomitant]
     Active Substance: HYDROMORPHONE
     Dosage: UNK
     Route: 048
  21. LEVORPHANOL TARTRATE. [Concomitant]
     Active Substance: LEVORPHANOL TARTRATE
     Dosage: 1 TABLETS, 1X/DAY
     Route: 048
     Dates: start: 20170710
  22. MORPHINE [Suspect]
     Active Substance: MORPHINE
     Dosage: 20.516 MG, \DAY
     Route: 037
     Dates: start: 20170830
  23. MS CONTIN [Concomitant]
     Active Substance: MORPHINE SULFATE
     Dosage: 120 MG, 1X/DAY
     Route: 048
     Dates: start: 20141215
  24. NAMENDA [Concomitant]
     Active Substance: MEMANTINE HYDROCHLORIDE
     Dosage: 10 MG, UNK
     Route: 048
     Dates: start: 20170719

REACTIONS (24)
  - Constipation [Unknown]
  - Device infusion issue [Unknown]
  - Sacroiliitis [Unknown]
  - Gait disturbance [Unknown]
  - Off label use [Unknown]
  - Radiculopathy [None]
  - Headache [Unknown]
  - Road traffic accident [Unknown]
  - Pain [Unknown]
  - Nausea [None]
  - Spinal osteoarthritis [None]
  - Erythema [Unknown]
  - Nervous system neoplasm [Unknown]
  - Drug dose omission [Unknown]
  - Loss of personal independence in daily activities [Unknown]
  - Burning sensation [Unknown]
  - Hypoaesthesia [Unknown]
  - Sleep disorder [Unknown]
  - Bladder disorder [Unknown]
  - Intervertebral disc degeneration [Unknown]
  - Arthralgia [Unknown]
  - Muscle spasms [Unknown]
  - Oedema peripheral [Unknown]
  - Drug ineffective for unapproved indication [Unknown]

NARRATIVE: CASE EVENT DATE: 20160125
